FAERS Safety Report 6877827-X (Version None)
Quarter: 2010Q3

REPORT INFORMATION
  Report Type: 
  Country: None (occurrence: None)
  Receive Date: 20100727
  Receipt Date: 20070702
  Transmission Date: 20110219
  Serious: Yes (Death, Hospitalization, Other)
  Sender: FDA-Public Use
  Company Number: US-PFIZER INC-2007010383

PATIENT
  Sex: Female
  Weight: 61.2 kg

DRUGS (1)
  1. CELEBREX [Suspect]
     Route: 048
     Dates: start: 20020701, end: 20030701

REACTIONS (3)
  - DEPRESSION [None]
  - IRRITABILITY [None]
  - MYOCARDIAL INFARCTION [None]
